FAERS Safety Report 25434487 (Version 1)
Quarter: 2025Q2

REPORT INFORMATION
  Report Type: Spontaneous
  Country: US (occurrence: US)
  Receive Date: 20250613
  Receipt Date: 20250613
  Transmission Date: 20250717
  Serious: No
  Sender: SANOFI AVENTIS
  Company Number: US-SA-2025SA165455

PATIENT
  Sex: Male

DRUGS (6)
  1. DUPIXENT [Suspect]
     Active Substance: DUPILUMAB
     Indication: Asthma
     Dosage: 300 MG, QOW
     Route: 058
  2. CIALIS [Concomitant]
     Active Substance: TADALAFIL
  3. IPRATROPIUM [Concomitant]
     Active Substance: IPRATROPIUM
  4. LISINOPRIL [Concomitant]
     Active Substance: LISINOPRIL
  5. METHOCARBAMOL [Concomitant]
     Active Substance: METHOCARBAMOL
  6. MONTELUKAST [Concomitant]
     Active Substance: MONTELUKAST

REACTIONS (8)
  - Diarrhoea [Unknown]
  - Fatigue [Unknown]
  - Lethargy [Unknown]
  - Oral herpes [Unknown]
  - Toothache [Unknown]
  - Insomnia [Unknown]
  - Oropharyngeal pain [Unknown]
  - Back pain [Unknown]
